FAERS Safety Report 25554892 (Version 1)
Quarter: 2025Q3

REPORT INFORMATION
  Report Type: Spontaneous
  Country: EU (occurrence: EU)
  Receive Date: 20250715
  Receipt Date: 20250715
  Transmission Date: 20251020
  Serious: Yes (Hospitalization, Other)
  Sender: SANDOZ
  Company Number: None

PATIENT
  Age: 55 Year
  Sex: Female
  Weight: 73 kg

DRUGS (5)
  1. ERELZI [Suspect]
     Active Substance: ETANERCEPT-SZZS
     Indication: Arthritis reactive
     Dosage: 1 DOSAGE FORM, QW (IN THIGH ONCE A WEEK, REPEATED FOUR TIMES)
     Route: 058
     Dates: start: 202302, end: 20230220
  2. ERELZI [Suspect]
     Active Substance: ETANERCEPT-SZZS
     Dosage: 1 DOSAGE FORM, QW (IN THIGH ONCE A WEEK, REPEATED FOUR TIMES)
     Route: 058
     Dates: start: 20230130, end: 20230220
  3. PREDNISOLONE [Concomitant]
     Active Substance: PREDNISOLONE
     Indication: Arthritis reactive
     Route: 065
     Dates: start: 20230103
  4. VITAMIN D NOS [Concomitant]
     Active Substance: CHOLECALCIFEROL\ERGOCALCIFEROL
     Indication: Product used for unknown indication
     Route: 065
  5. VITAMIN C [Concomitant]
     Active Substance: ASCORBIC ACID
     Indication: Product used for unknown indication
     Route: 065

REACTIONS (9)
  - Panniculitis [Recovering/Resolving]
  - Musculoskeletal chest pain [Recovered/Resolved with Sequelae]
  - Mesenteric panniculitis [Recovered/Resolved with Sequelae]
  - C-reactive protein increased [Recovered/Resolved with Sequelae]
  - Musculoskeletal stiffness [Recovered/Resolved with Sequelae]
  - Pain [Recovered/Resolved with Sequelae]
  - Dyspnoea [Recovered/Resolved with Sequelae]
  - Abdominal pain [Recovered/Resolved with Sequelae]
  - Necrosis [Unknown]

NARRATIVE: CASE EVENT DATE: 20230201
